FAERS Safety Report 12760857 (Version 5)
Quarter: 2017Q1

REPORT INFORMATION
  Report Type: Report from Study
  Country: GB (occurrence: GB)
  Receive Date: 20160919
  Receipt Date: 20170313
  Transmission Date: 20170428
  Serious: Yes (Hospitalization, Other)
  Sender: FDA-Public Use
  Company Number: PHHO2016GB012464

PATIENT
  Age: 53 Year
  Sex: Female
  Weight: 60.4 kg

DRUGS (6)
  1. PACLITAXEL. [Suspect]
     Active Substance: PACLITAXEL
     Indication: OVARIAN EPITHELIAL CANCER
     Dosage: UNK
     Route: 042
     Dates: start: 20150128, end: 20150128
  2. CARBOPLATIN. [Concomitant]
     Active Substance: CARBOPLATIN
     Indication: OVARIAN EPITHELIAL CANCER
     Dosage: UNK
     Route: 065
     Dates: start: 20150218, end: 20150616
  3. LETROZOLE. [Concomitant]
     Active Substance: LETROZOLE
     Indication: PRODUCT USED FOR UNKNOWN INDICATION
     Dosage: UNK
     Route: 065
     Dates: start: 20151001, end: 20151230
  4. TAMOXIFEN [Suspect]
     Active Substance: TAMOXIFEN
     Indication: OVARIAN EPITHELIAL CANCER
     Dosage: 20 MG, BID
     Route: 048
     Dates: start: 20160310, end: 20160419
  5. TRAMETINIB [Suspect]
     Active Substance: TRAMETINIB
     Indication: OVARIAN EPITHELIAL CANCER
     Dosage: 2 MG, ONCE/SINGLE
     Route: 048
     Dates: start: 20160505, end: 20160530
  6. TRAMETINIB [Suspect]
     Active Substance: TRAMETINIB
     Dosage: 2 MG, ONCE/SINGLE (CUMULATIVE DOSE 28 MG)
     Route: 048
     Dates: start: 20160505, end: 20170111

REACTIONS (6)
  - Nausea [Unknown]
  - Large intestinal stenosis [Recovered/Resolved]
  - Vomiting [Not Recovered/Not Resolved]
  - Large intestinal obstruction [Recovered/Resolved with Sequelae]
  - Abdominal pain [Unknown]
  - Constipation [Unknown]

NARRATIVE: CASE EVENT DATE: 20160528
